FAERS Safety Report 21097479 (Version 1)
Quarter: 2022Q3

REPORT INFORMATION
  Report Type: Report from Study
  Country: US (occurrence: US)
  Receive Date: 20220719
  Receipt Date: 20220719
  Transmission Date: 20221027
  Serious: Yes (Hospitalization, Other)
  Sender: FDA-Public Use
  Company Number: US-BRISTOL-MYERS SQUIBB COMPANY-2022-070797

PATIENT
  Age: 63 Year
  Sex: Female
  Weight: 76.657 kg

DRUGS (1)
  1. POMALYST [Suspect]
     Active Substance: POMALIDOMIDE
     Indication: Plasma cell myeloma
     Dosage: FREQUENCY: DAILY 21 OF 28 DAYS
     Route: 048
     Dates: start: 20220222

REACTIONS (2)
  - Renal failure [Unknown]
  - Illness [Unknown]
